FAERS Safety Report 8954742 (Version 1)
Quarter: 2012Q4

REPORT INFORMATION
  Report Type: 
  Country: BR (occurrence: BR)
  Receive Date: 20121207
  Receipt Date: 20121207
  Transmission Date: 20130627
  Serious: Yes (Other)
  Sender: FDA-Public Use
  Company Number: PHHY2012BR112884

PATIENT
  Sex: Female

DRUGS (4)
  1. RASILEZ [Suspect]
     Indication: HYPERTENSION
     Dosage: 0.5 DF, QD
  2. CARVEDILOL [Concomitant]
     Dosage: 0.5 DF, UNK
  3. OMETEC [Concomitant]
     Dosage: 0.5 DF, UNK
  4. MAREVAN [Concomitant]
     Dosage: 0.25 DF, PRN

REACTIONS (4)
  - Thrombosis [Recovering/Resolving]
  - Boredom [Recovering/Resolving]
  - Blood pressure increased [Recovering/Resolving]
  - Wrong technique in drug usage process [Recovering/Resolving]
